FAERS Safety Report 18694159 (Version 1)
Quarter: 2020Q4

REPORT INFORMATION
  Report Type: Spontaneous
  Country: US (occurrence: US)
  Receive Date: 20201230
  Receipt Date: 20201230
  Transmission Date: 20210114
  Serious: Yes (Hospitalization)
  Sender: FDA-Public Use
  Company Number: None

PATIENT
  Sex: Female

DRUGS (1)
  1. ARANESP [Suspect]
     Active Substance: DARBEPOETIN ALFA
     Indication: PSEUDOMONAS INFECTION
     Dosage: OTHER DOSE:60MCG/.3ML;?
     Route: 058
     Dates: start: 202006

REACTIONS (1)
  - Hospitalisation [None]
